FAERS Safety Report 18483532 (Version 1)
Quarter: 2020Q4

REPORT INFORMATION
  Report Type: Spontaneous
  Country: US (occurrence: US)
  Receive Date: 20201109
  Receipt Date: 20201109
  Transmission Date: 20210114
  Serious: No
  Sender: FDA-Public Use
  Company Number: US-ROCHE-2558328

PATIENT
  Sex: Male
  Weight: 88 kg

DRUGS (2)
  1. PULMOZYME [Suspect]
     Active Substance: DORNASE ALFA
     Indication: EMPYEMA
     Dosage: ADMINISTERED IN 30 ML NS, IVP OVER 5 MINUTES ;ONGOING: NO
     Route: 042
     Dates: start: 20200221, end: 20200221
  2. ZOSYN [Concomitant]
     Active Substance: PIPERACILLIN SODIUM\TAZOBACTAM SODIUM
     Indication: PNEUMONIA
     Dosage: YES
     Route: 042
     Dates: start: 20200218

REACTIONS (4)
  - No adverse event [Unknown]
  - Intentional product use issue [Unknown]
  - Product use issue [Unknown]
  - Off label use [Unknown]
